FAERS Safety Report 6507994-9 (Version None)
Quarter: 2009Q4

REPORT INFORMATION
  Report Type: 
  Country: None (occurrence: None)
  Receive Date: 20091221
  Receipt Date: 20091216
  Transmission Date: 20100525
  Serious: Yes (Other)
  Sender: FDA-Public Use
  Company Number: CHPA2009US23739

PATIENT
  Age: 47 Year
  Sex: Male
  Weight: 79.819 kg

DRUGS (1)
  1. PREVACID 24 HR [Suspect]
     Indication: GASTROOESOPHAGEAL REFLUX DISEASE
     Dosage: 15 MG, QD
     Route: 048
     Dates: start: 20091116, end: 20091216

REACTIONS (3)
  - BLOOD PRESSURE INCREASED [None]
  - INTENTIONAL DRUG MISUSE [None]
  - OFF LABEL USE [None]
